FAERS Safety Report 14783840 (Version 3)
Quarter: 2018Q2

REPORT INFORMATION
  Report Type: Spontaneous
  Country: SE (occurrence: SE)
  Receive Date: 20180420
  Receipt Date: 20180522
  Transmission Date: 20180711
  Serious: Yes (Hospitalization)
  Sender: FDA-Public Use
  Company Number: SE-VERTEX PHARMACEUTICALS-2018-002492

PATIENT
  Sex: Male

DRUGS (36)
  1. AZITHROMYCIN ANHYDROUS. [Concomitant]
     Active Substance: AZITHROMYCIN ANHYDROUS
     Dosage: 1 DOSAGE FORM, QD (AT 8 AM)
  2. OLANZAPIN SANDOZ [Concomitant]
     Active Substance: OLANZAPINE
     Dosage: TEMPORARILY STOPPED
  3. URSOFALK [Concomitant]
     Active Substance: URSODIOL
     Dosage: 2 TABS AT 8 AM, 1 TAB AT 5 PM
  4. MEDIC [Concomitant]
     Indication: HAEMOPTYSIS
     Dosage: 2 TABS AT 5PM DAILY
  5. E-VIMIN [Concomitant]
     Dosage: 2 CAPSULES AT 8 AM, 4 CAPSULES AT 8 PM
  6. CALCICHEW-D3 [Concomitant]
     Active Substance: CALCIUM\CHOLECALCIFEROL
     Dosage: 3 TABS 8AM AND 8PM DAILY
  7. ZYPREXA [Concomitant]
     Active Substance: OLANZAPINE
     Dosage: TABLET AT 8PM. DAILY
  8. TESTOSTERON                        /00103101/ [Concomitant]
     Active Substance: TESTOSTERONE
  9. LORATADIN [Concomitant]
     Active Substance: LORATADINE
     Indication: HYPERSENSITIVITY
     Dosage: TO TAKE IN SUMMER
  10. OXIS [Concomitant]
     Active Substance: FORMOTEROL FUMARATE
     Dosage: 1 DOSE EACH AT 8AM AND 8PM PLUS AS NEEDED
  11. SOLUVIT                            /01591701/ [Concomitant]
     Dosage: 1 AMPOULE AT 10 PM DAILY
  12. CAYSTON [Concomitant]
     Active Substance: AZTREONAM
     Dosage: TEMPORARILY STOPPED
  13. SERTRALINE [Concomitant]
     Active Substance: SERTRALINE HYDROCHLORIDE
     Dosage: 2 TABS, QD (8 AM), CAN BE INCREASED UPTO 3
  14. NEXIUM [Concomitant]
     Active Substance: ESOMEPRAZOLE MAGNESIUM
     Dosage: TEMPORARILY STOPPED
  15. VITALIPID                          /01314101/ [Concomitant]
     Active Substance: ERGOCALCIFEROL\PHYTONADIONE\RETINOL\TOCOPHEROL
     Dosage: 10ML AT 10PM
  16. RINGER-ACETAT BAXTER VIAFLO [Concomitant]
     Indication: FASTING
     Dosage: 1000ML AT 2PM, DAILY
     Route: 042
  17. TRACEL [Concomitant]
  18. MENADION [Concomitant]
  19. ORKAMBI [Suspect]
     Active Substance: IVACAFTOR\LUMACAFTOR
     Dosage: REDUCED DOSE
     Route: 048
     Dates: start: 2018, end: 20180426
  20. VENTOLINE                          /00139501/ [Concomitant]
     Active Substance: ALBUTEROL
     Dosage: 2.5 MILLILITER, QD (8 AM)
  21. CYKLOKAPRON [Concomitant]
     Active Substance: TRANEXAMIC ACID
     Indication: HAEMOPTYSIS
     Dosage: 3X3 PRN (TEMPORARILY STOPPED)
  22. BISOLVON [Concomitant]
     Active Substance: BROMHEXINE HYDROCHLORIDE
     Dosage: 3 TABS EACH AT 8AM AND 8PM
  23. CREON [Concomitant]
     Active Substance: PANCRELIPASE AMYLASE\PANCRELIPASE LIPASE\PANCRELIPASE PROTEASE
     Dosage: 6-7 PER MEAL
  24. DUROFERON [Concomitant]
     Active Substance: FERROUS SULFATE
     Indication: BLOOD IRON DECREASED
     Dosage: AS NEEDED
  25. SMOFKABIVEN PERIFER [Concomitant]
     Dosage: 1904 ML 10PM. DAILY
     Route: 042
  26. ORKAMBI [Suspect]
     Active Substance: IVACAFTOR\LUMACAFTOR
     Indication: CYSTIC FIBROSIS
     Dosage: 2 DOSAGE FORM, BID
     Route: 048
     Dates: start: 201801, end: 2018
  27. MIRTAZAPIN ACTAVIS [Concomitant]
     Active Substance: MIRTAZAPINE
     Indication: DEPRESSION
     Dosage: 3 TABS, QD (NIGHT TIME)
  28. DEVITRE [Concomitant]
     Active Substance: CHOLECALCIFEROL
     Dosage: 2 TABS AT 8AM, 2 TABS AT 8PM
  29. PULMICORT TURBUHALER [Concomitant]
     Active Substance: BUDESONIDE
     Dosage: 1 DOSE AT 8AM AND 1 DOSE AT 8PM
  30. ALVEDON [Concomitant]
     Active Substance: ACETAMINOPHEN
     Indication: PAIN
     Dosage: 2 TABS, PRN (MAX 8 TABLETS/24HOURS)
  31. ACETYLCYSTEIN [Concomitant]
     Active Substance: ACETYLCYSTEINE
     Dosage: 2 TABS EACH AT 8AM AND 8PM
  32. ADDAVEN [Concomitant]
     Active Substance: ELECTROLYTES NOS\MINERALS
     Dosage: 10 ML AT 10PM. DAILY
  33. STESOLID [Concomitant]
     Active Substance: DIAZEPAM
     Indication: ANXIETY
     Dosage: 1 TAB, QD (8 AM), 1-2 TABS FOR ANXIETY AT LUNCH TIME
  34. PRIMPERAN [Concomitant]
     Active Substance: METOCLOPRAMIDE HYDROCHLORIDE
     Indication: NAUSEA
     Dosage: 1 TABLET AS NEEDED
  35. PIPERACILLIN/TAZOBACTAM REIG JOFRE [Concomitant]
     Indication: CYSTIC FIBROSIS
     Dosage: GRAMS AT 08AM, 4 GRAMS AT 04PM, DAILY.
  36. TADIM [Concomitant]
     Active Substance: COLISTIMETHATE SODIUM
     Indication: INFECTION
     Dosage: 2 ME TADIM MIXED WITH 100ML NACL FOR INFUSION TID

REACTIONS (1)
  - Gastrointestinal haemorrhage [Recovering/Resolving]

NARRATIVE: CASE EVENT DATE: 20180410
